FAERS Safety Report 20740768 (Version 1)
Quarter: 2022Q2

REPORT INFORMATION
  Report Type: Spontaneous
  Country: US (occurrence: US)
  Receive Date: 20220422
  Receipt Date: 20220422
  Transmission Date: 20220720
  Serious: No
  Sender: FDA-Public Use
  Company Number: US-PERRIGO-21US009844

PATIENT
  Sex: Male

DRUGS (1)
  1. NAPROXEN SODIUM\PSEUDOEPHEDRINE HYDROCHLORIDE [Suspect]
     Active Substance: NAPROXEN SODIUM\PSEUDOEPHEDRINE HYDROCHLORIDE
     Indication: Productive cough
     Dosage: HALF TABLET, PRN
     Route: 048
     Dates: start: 2016

REACTIONS (3)
  - Off label use [Unknown]
  - Underdose [Unknown]
  - Wrong technique in product usage process [Unknown]

NARRATIVE: CASE EVENT DATE: 20160101
